FAERS Safety Report 6148217-2 (Version None)
Quarter: 2009Q2

REPORT INFORMATION
  Report Type: 
  Country: None (occurrence: None)
  Receive Date: 20090408
  Receipt Date: 20090323
  Transmission Date: 20091009
  Serious: Yes (Other)
  Sender: FDA-Public Use
  Company Number: PHHY2009FI13022

PATIENT
  Age: 73 Year
  Sex: Female

DRUGS (4)
  1. STALEVO 100 [Suspect]
     Dosage: 50 MG
     Dates: start: 20080101
  2. STALEVO 100 [Suspect]
     Dosage: UNK
  3. ELDEPRYL [Concomitant]
     Dosage: UNK
  4. SIFROL [Concomitant]
     Dosage: 0.7 MG, 1/2 X 3

REACTIONS (3)
  - FALL [None]
  - JOINT INJURY [None]
  - MOVEMENT DISORDER [None]
